FAERS Safety Report 12266252 (Version 1)
Quarter: 2016Q2

REPORT INFORMATION
  Report Type: Spontaneous
  Country: None (occurrence: None)
  Receive Date: 20160413
  Receipt Date: 20160413
  Transmission Date: 20160815
  Serious: No
  Sender: FDA-Public Use
  Company Number: None

PATIENT
  Age: 53 Year
  Sex: Female

DRUGS (1)
  1. METHOTREXATE 2.5MG TABLETS [Suspect]
     Active Substance: METHOTREXATE

REACTIONS (1)
  - Nausea [None]

NARRATIVE: CASE EVENT DATE: 20160412
